FAERS Safety Report 6526937-5 (Version None)
Quarter: 2009Q4

REPORT INFORMATION
  Report Type: 
  Country: None (occurrence: None)
  Receive Date: 20091222
  Receipt Date: 20090917
  Transmission Date: 20100525
  Serious: Yes (Other)
  Sender: FDA-Public Use
  Company Number: US-GDP-09406661

PATIENT
  Age: 39 Year
  Sex: Female

DRUGS (2)
  1. EPIDUO [Suspect]
     Indication: ACNE
     Dosage: 1 DF QD TOPICAL
     Route: 061
     Dates: start: 20090801
  2. PURPOSE [Concomitant]

REACTIONS (2)
  - ACNE [None]
  - ACNE CYSTIC [None]
